FAERS Safety Report 9426688 (Version 1)
Quarter: 2013Q3

REPORT INFORMATION
  Report Type: Spontaneous
  Country: US (occurrence: US)
  Receive Date: 20130730
  Receipt Date: 20130730
  Transmission Date: 20140515
  Serious: Yes (Other)
  Sender: FDA-Public Use
  Company Number: US-SANOFI-AVENTIS-2012SA057134

PATIENT
  Sex: Female

DRUGS (1)
  1. ZOLPIDEM [Suspect]
     Route: 048

REACTIONS (5)
  - Somnambulism [Unknown]
  - Road traffic accident [Unknown]
  - Memory impairment [Unknown]
  - Abnormal behaviour [Unknown]
  - Hallucination [Unknown]
